FAERS Safety Report 22084092 (Version 1)
Quarter: 2023Q1

REPORT INFORMATION
  Report Type: Report from Study
  Country: GB (occurrence: GB)
  Receive Date: 20230310
  Receipt Date: 20230310
  Transmission Date: 20230418
  Serious: Yes (Other)
  Sender: FDA-Public Use
  Company Number: GB-ABBVIE-22K-167-4526032-00

PATIENT
  Age: 77 Year
  Sex: Male

DRUGS (12)
  1. RIVASTIGMINE [Suspect]
     Active Substance: RIVASTIGMINE
     Indication: Product used for unknown indication
     Dosage: 9.5 MILLIGRAM, QD (9.5 MILLIGRAM (1 X PATCH 9.5MG OVER 24 HOURS APPLIED AT 08:00)
     Route: 065
  2. CARBIDOPA\LEVODOPA [Suspect]
     Active Substance: CARBIDOPA\LEVODOPA
     Indication: Parkinson^s disease
     Dosage: UNK (20MGS/5MGS, MD 9.0, CR 2.0, ED 1.0 CONTINUOUS, ROUTE: PERCUTANEOUS J-TUBE)
     Route: 065
  3. CARBIDOPA\LEVODOPA [Suspect]
     Active Substance: CARBIDOPA\LEVODOPA
     Dosage: UNK (MD 10, CR 3.2, ED 1.7, ROUTE: PERCUTANEOUS J-TUBE)
     Route: 065
  4. CARBIDOPA\LEVODOPA [Suspect]
     Active Substance: CARBIDOPA\LEVODOPA
     Dosage: UNK (20MG/5MG, MD 10, CR 3.0, ED 1.5, ROUTE: PERCUTANEOUS J-TUBE)
     Route: 065
  5. CARBIDOPA\LEVODOPA [Suspect]
     Active Substance: CARBIDOPA\LEVODOPA
     Dosage: UNK (MD 10, CR 3, ED 1.7, ROUTE: PERCUTANEOUS J-TUBE)
     Route: 065
  6. CARBIDOPA\LEVODOPA [Suspect]
     Active Substance: CARBIDOPA\LEVODOPA
     Dosage: UNK (MD 10, CR 3.2 AND ED 1.7, ROUTE: PERCUTANEOUS J-TUBE)
     Route: 065
     Dates: start: 2022
  7. CARBIDOPA\LEVODOPA [Suspect]
     Active Substance: CARBIDOPA\LEVODOPA
     Dosage: UNK (20MGS/5MGS; MD: 10.0, CR:3.0, ED:1.7 FIRST ADMIN 2022 LAST ADMIN 2022, ROUTE: PERCUTANEOUS)
     Route: 065
  8. CARBIDOPA\LEVODOPA [Suspect]
     Active Substance: CARBIDOPA\LEVODOPA
     Dosage: UNK (MD 10, CR 3.2, ED 1.7, ROUTE: PERCUTANEOUS J-TUBE)
     Route: 065
  9. NEUPRO [Concomitant]
     Active Substance: ROTIGOTINE
     Indication: Product used for unknown indication
     Dosage: 8 MILLIGRAM (PATCH APPROVED AT 08:00)
     Route: 065
  10. FLUCLOXACILLIN [Concomitant]
     Active Substance: FLUCLOXACILLIN
     Indication: Infection
     Dosage: UNK
     Route: 065
     Dates: start: 20220828
  11. RIVASTIGMINE [Concomitant]
     Active Substance: RIVASTIGMINE
     Indication: Product used for unknown indication
     Dosage: 9.5 MILLIGRAM, QD (1 X PATCH 9.5MG OVER 24 HOURS APPLIED AT 08:00)
     Route: 065
  12. SINEMET [Concomitant]
     Active Substance: CARBIDOPA\LEVODOPA
     Indication: Product used for unknown indication
     Dosage: UNK (50MG/200 ONE AT 21:00 MODIFIED RELEASE, 1 AT 22.00 CR)
     Route: 065

REACTIONS (26)
  - Parkinson^s disease [Unknown]
  - Stoma site discharge [Recovered/Resolved]
  - Musculoskeletal stiffness [Unknown]
  - Joint injury [Unknown]
  - Osteoporosis [Unknown]
  - Arthralgia [Unknown]
  - Joint effusion [Unknown]
  - Stoma site odour [Recovered/Resolved]
  - Stoma site infection [Not Recovered/Not Resolved]
  - Freezing phenomenon [Unknown]
  - Kyphosis [Unknown]
  - On and off phenomenon [Unknown]
  - Pain [Unknown]
  - Nocturia [Unknown]
  - Posture abnormal [Unknown]
  - Musculoskeletal disorder [Unknown]
  - Muscle rigidity [Unknown]
  - Bradykinesia [Unknown]
  - Fatigue [Not Recovered/Not Resolved]
  - Fall [Unknown]
  - Urinary incontinence [Unknown]
  - Asthenia [Not Recovered/Not Resolved]
  - Insomnia [Recovering/Resolving]
  - Weight decreased [Unknown]
  - Therapeutic product effect incomplete [Not Recovered/Not Resolved]
  - Therapeutic product effect delayed [Not Recovered/Not Resolved]

NARRATIVE: CASE EVENT DATE: 20220901
